FAERS Safety Report 5071736-7 (Version None)
Quarter: 2006Q3

REPORT INFORMATION
  Report Type: 
  Country: None (occurrence: None)
  Receive Date: 20060801
  Receipt Date: 20060714
  Transmission Date: 20061208
  Serious: Yes (Death)
  Sender: FDA-Public Use
  Company Number: DE200607002504

PATIENT
  Sex: Male

DRUGS (1)
  1. XIGRIS [Suspect]
     Indication: SYSTEMIC INFLAMMATORY RESPONSE SYNDROME
     Dosage: INTRAVENOUS
     Route: 042

REACTIONS (2)
  - MULTI-ORGAN FAILURE [None]
  - OFF LABEL USE [None]
